FAERS Safety Report 10182898 (Version 1)
Quarter: 2014Q2

REPORT INFORMATION
  Report Type: Spontaneous
  Country: FR (occurrence: FR)
  Receive Date: 20140520
  Receipt Date: 20140520
  Transmission Date: 20141212
  Serious: Yes (Hospitalization)
  Sender: FDA-Public Use
  Company Number: FR-ASTRAZENECA-2014SE32902

PATIENT
  Age: 9108 Day
  Sex: Female

DRUGS (3)
  1. INEXIUM [Suspect]
     Route: 048
     Dates: start: 201402, end: 201403
  2. IMETH [Interacting]
     Indication: SPONDYLITIS
     Route: 048
     Dates: start: 201304, end: 20140320
  3. REMICADE [Concomitant]
     Indication: SPONDYLITIS
     Dates: start: 201304

REACTIONS (2)
  - Drug interaction [Recovering/Resolving]
  - Drug-induced liver injury [Recovering/Resolving]
